FAERS Safety Report 4845709-0 (Version None)
Quarter: 2005Q4

REPORT INFORMATION
  Report Type: 
  Country: None (occurrence: None)
  Receive Date: 20051206
  Receipt Date: 20051125
  Transmission Date: 20060501
  Serious: Yes (Hospitalization)
  Sender: FDA-Public Use
  Company Number: FR-ABBOTT-05P-056-0318246-00

PATIENT
  Sex: Female

DRUGS (6)
  1. DEPAKOTE [Suspect]
     Indication: BIPOLAR DISORDER
     Route: 048
     Dates: end: 20050801
  2. DEPAKOTE [Suspect]
     Route: 048
     Dates: start: 20050801, end: 20050901
  3. DEPAKOTE [Suspect]
     Route: 048
     Dates: start: 20051001, end: 20051001
  4. DEPAKOTE [Suspect]
     Route: 048
     Dates: start: 20051001, end: 20051102
  5. DEPAKOTE [Suspect]
     Route: 048
     Dates: end: 20051101
  6. DEPAKENE [Suspect]
     Indication: DRUG ADMINISTRATION ERROR
     Route: 048
     Dates: start: 20050901, end: 20051001

REACTIONS (6)
  - DRUG INEFFECTIVE [None]
  - DRUG LEVEL INCREASED [None]
  - MANIA [None]
  - PLATELET COUNT DECREASED [None]
  - PSYCHOMOTOR RETARDATION [None]
  - SOMNOLENCE [None]
